FAERS Safety Report 4727294-7 (Version None)
Quarter: 2005Q3

REPORT INFORMATION
  Report Type: 
  Country: None (occurrence: None)
  Receive Date: 20050728
  Receipt Date: 20050713
  Transmission Date: 20060218
  Serious: Yes (Other)
  Sender: FDA-Public Use
  Company Number: GBWYE833715JUL05

PATIENT
  Age: 9 Year
  Sex: Female

DRUGS (4)
  1. ENBREL [Suspect]
     Indication: DRUG USE FOR UNKNOWN INDICATION
     Dosage: 9.6MG FREQUENCY UNKNOWN
     Route: 058
     Dates: start: 20010101
  2. FELDENE [Concomitant]
     Indication: SARCOIDOSIS
     Dosage: 10MG FREQUENCY UNKNOWN
  3. METHOTREXATE [Concomitant]
     Dosage: UNKNOWN
     Dates: start: 20010101
  4. CORTISPORIN [Concomitant]

REACTIONS (3)
  - LOWER RESPIRATORY TRACT INFECTION [None]
  - MALAISE [None]
  - PYREXIA [None]
